FAERS Safety Report 4905480-0 (Version None)
Quarter: 2006Q1

REPORT INFORMATION
  Report Type: 
  Country: None (occurrence: None)
  Receive Date: 20060203
  Receipt Date: 20060131
  Transmission Date: 20060701
  Serious: Yes (Hospitalization)
  Sender: FDA-Public Use
  Company Number: 200507934

PATIENT
  Age: 49 Year
  Sex: Male
  Weight: 63.5036 kg

DRUGS (1)
  1. BOTOX [Suspect]
     Indication: NECK PAIN

REACTIONS (5)
  - ABSCESS LIMB [None]
  - BACTERIAL INFECTION [None]
  - OEDEMA PERIPHERAL [None]
  - PAIN IN EXTREMITY [None]
  - PARAESTHESIA [None]
